FAERS Safety Report 14217760 (Version 2)
Quarter: 2017Q4

REPORT INFORMATION
  Report Type: Report from Study
  Country: US (occurrence: US)
  Receive Date: 20171123
  Receipt Date: 20171204
  Transmission Date: 20180321
  Serious: Yes (Other)
  Sender: FDA-Public Use
  Company Number: US-SHIRE-US201730257

PATIENT
  Age: 61 Year
  Sex: Female

DRUGS (1)
  1. HUMAN NORMAL IMMUNOGLOBULIN; LIQUID 20 [Suspect]
     Active Substance: HUMAN IMMUNOGLOBULIN G
     Indication: PRIMARY IMMUNODEFICIENCY SYNDROME
     Dosage: 15 G, EVERY OTHER WEEK
     Route: 065
     Dates: start: 20171102

REACTIONS (4)
  - Headache [Unknown]
  - Oral herpes [Unknown]
  - Lymphadenopathy [Unknown]
  - Depression [Unknown]

NARRATIVE: CASE EVENT DATE: 20171106
